FAERS Safety Report 10680978 (Version 2)
Quarter: 2014Q4

REPORT INFORMATION
  Report Type: Report from Study
  Country: US (occurrence: US)
  Receive Date: 20141229
  Receipt Date: 20141230
  Transmission Date: 20150529
  Serious: Yes (Other)
  Sender: FDA-Public Use
  Company Number: US-GLAXOSMITHKLINE-US2014GSK040100

PATIENT
  Age: 60 Year
  Sex: Female

DRUGS (4)
  1. PERTUZUMAB [Concomitant]
     Active Substance: PERTUZUMAB
  2. LAPATINIB TOSILATE TABLET [Suspect]
     Active Substance: LAPATINIB DITOSYLATE
     Indication: BREAST CANCER
     Dosage: 1500 MG, QD
     Route: 048
     Dates: start: 20141114, end: 20141208
  3. INTRAVENOUS FLUIDS [Concomitant]
  4. TRASTUZUMAB [Concomitant]
     Active Substance: TRASTUZUMAB

REACTIONS (1)
  - Hepatic enzyme increased [Recovering/Resolving]

NARRATIVE: CASE EVENT DATE: 20141208
